FAERS Safety Report 9899308 (Version 3)
Quarter: 2014Q2

REPORT INFORMATION
  Report Type: Report from Study
  Country: US (occurrence: US)
  Receive Date: 20140214
  Receipt Date: 20140508
  Transmission Date: 20141212
  Serious: Yes (Hospitalization)
  Sender: FDA-Public Use
  Company Number: US-SA-2013SA129042

PATIENT
  Age: 44 Year
  Sex: Female

DRUGS (3)
  1. AUBAGIO [Suspect]
     Indication: MULTIPLE SCLEROSIS
     Route: 065
     Dates: start: 20131014
  2. AUBAGIO [Suspect]
     Indication: MULTIPLE SCLEROSIS
     Route: 065
     Dates: start: 20131112
  3. AUBAGIO [Suspect]
     Indication: MULTIPLE SCLEROSIS
     Route: 048

REACTIONS (9)
  - Migraine [Unknown]
  - Back pain [Unknown]
  - Benign neoplasm of adrenal gland [Unknown]
  - Fibromyalgia [Unknown]
  - Adrenal gland abscess [Unknown]
  - Fall [Recovering/Resolving]
  - Pain [Recovering/Resolving]
  - Visual impairment [Unknown]
  - Drug dose omission [Unknown]
